FAERS Safety Report 8517921-0 (Version None)
Quarter: 2012Q3

REPORT INFORMATION
  Report Type: 
  Country: None (occurrence: None)
  Receive Date: 20120718
  Receipt Date: 20110718
  Transmission Date: 20120928
  Serious: Yes (Other)
  Sender: FDA-Public Use
  Company Number: US-BRISTOL-MYERS SQUIBB COMPANY-15908486

PATIENT
  Age: 71 Year
  Sex: Female
  Weight: 54 kg

DRUGS (17)
  1. COUMADIN [Interacting]
     Indication: VENTRICULAR FLUTTER
     Dosage: INITIAL DOSE 3.5 MG INCREASED TO 7.5 MG DAILY AND SUNDAY 10MG DAILY
     Route: 065
  2. MULTI-VITAMINS [Interacting]
     Indication: VITAMIN SUPPLEMENTATION
     Route: 065
     Dates: start: 20110401, end: 20110627
  3. DIGOXIN [Concomitant]
     Indication: CARDIAC DISORDER
  4. MELATONIN [Suspect]
     Indication: SLEEP DISORDER
     Dosage: USUALLY ONCE A WEEK.
     Dates: start: 20110401
  5. POTASSIUM CHLORIDE [Concomitant]
  6. METOPROLOL SUCCINATE [Concomitant]
     Indication: HYPERTENSION
  7. TIKOSYN [Concomitant]
     Indication: ARRHYTHMIA
  8. ASCORBIC ACID [Concomitant]
     Dosage: 1DF= 1000 UNITS.
  9. JANUMET [Concomitant]
     Indication: DIABETES MELLITUS
     Dosage: 1DF=50/500MG.
  10. VITAMIN D [Concomitant]
     Dosage: 1DF= 2000 UNITS.
  11. ROPINIROLE [Concomitant]
     Indication: RESTLESS LEGS SYNDROME
     Dosage: ROPINIROLE HCL TABLET
  12. CHLORTHALIDONE [Concomitant]
  13. COUMADIN [Interacting]
     Indication: ATRIAL FIBRILLATION
     Dosage: INITIAL DOSE 3.5 MG INCREASED TO 7.5 MG DAILY AND SUNDAY 10MG DAILY
     Route: 065
  14. VITAMINS + MINERALS [Concomitant]
     Indication: MACULAR DEGENERATION
     Dosage: PRESERVATION EYE VITAMIN. UNK SHOT EVERY MONTH.
  15. SIMVASTATIN [Concomitant]
     Indication: BLOOD CHOLESTEROL INCREASED
  16. MELOXICAM [Concomitant]
     Indication: ARTHRITIS
  17. MAGNESIUM SULFATE [Concomitant]

REACTIONS (3)
  - BLOOD VISCOSITY INCREASED [None]
  - INTERNATIONAL NORMALISED RATIO DECREASED [None]
  - DRUG INTERACTION [None]
